FAERS Safety Report 7583573-X (Version None)
Quarter: 2011Q2

REPORT INFORMATION
  Report Type: 
  Country: None (occurrence: None)
  Receive Date: 20110630
  Receipt Date: 20110609
  Transmission Date: 20111010
  Serious: Yes (Hospitalization)
  Sender: FDA-Public Use
  Company Number: A0806061A

PATIENT
  Age: 48 Year
  Sex: Female
  Weight: 136 kg

DRUGS (18)
  1. LANTUS [Concomitant]
  2. LASIX [Concomitant]
  3. PRAVACHOL [Concomitant]
  4. PROTONIX [Concomitant]
  5. LISINOPRIL [Concomitant]
  6. ZESTORETIC [Concomitant]
  7. IMDUR [Concomitant]
  8. PIROXICAM [Concomitant]
  9. MISOPROSTOL [Concomitant]
  10. COREG [Concomitant]
  11. RESTORIL [Concomitant]
  12. ASPIRIN [Concomitant]
  13. AMBIEN [Concomitant]
  14. LIPITOR [Concomitant]
  15. AVANDIA [Suspect]
     Indication: DIABETES MELLITUS
     Route: 048
     Dates: start: 19990819, end: 20070815
  16. TYLENOL-500 [Concomitant]
  17. PREMARIN [Concomitant]
  18. QUININE SULFATE [Concomitant]

REACTIONS (6)
  - CARDIAC FAILURE CONGESTIVE [None]
  - CORONARY ARTERY DISEASE [None]
  - CONGESTIVE CARDIOMYOPATHY [None]
  - IMPLANTABLE DEFIBRILLATOR INSERTION [None]
  - DYSPNOEA [None]
  - CHEST PAIN [None]
